FAERS Safety Report 7336335-2 (Version None)
Quarter: 2011Q1

REPORT INFORMATION
  Report Type: 
  Country: None (occurrence: None)
  Receive Date: 20110307
  Receipt Date: 20110228
  Transmission Date: 20110831
  Serious: Yes (Other)
  Sender: FDA-Public Use
  Company Number: NL-PFIZER INC-2010179933

PATIENT
  Age: 94 Year
  Sex: Female
  Weight: 50 kg

DRUGS (19)
  1. AMLODIPINE [Concomitant]
     Dosage: 5 MG, UNK
     Dates: start: 20100701
  2. ARANESP [Concomitant]
     Dosage: 40 UNK, UNK
     Dates: start: 20100701, end: 20110114
  3. FENTANYL [Concomitant]
     Dosage: UNK
     Dates: start: 20101202, end: 20101215
  4. TEMAZEPAM [Concomitant]
     Dosage: UNK
     Dates: start: 20100708
  5. FENTANYL [Concomitant]
     Dosage: UNK
     Dates: start: 20101216
  6. PARACETAMOL [Concomitant]
     Dosage: 500 MG, UNK
     Dates: start: 20101217
  7. VASELINE [Concomitant]
     Dosage: UNK
     Dates: start: 20110128
  8. ISORDIL [Concomitant]
     Dosage: UNK
     Dates: start: 20100701
  9. ULTRACET [Concomitant]
  10. LYRICA [Suspect]
     Dosage: 25 MG, UNK
     Dates: start: 20101228, end: 20110103
  11. ACENOCOUMAROL [Concomitant]
     Dosage: UNK
     Dates: start: 20100701
  12. ARANESP [Concomitant]
     Dosage: UNK
     Dates: start: 20110115
  13. MICROLAX [Concomitant]
     Dosage: UNK
     Dates: start: 20100701
  14. MOVICOLON [Concomitant]
     Dosage: UNK
     Dates: start: 20100708
  15. LYRICA [Suspect]
     Indication: NEURALGIA
     Dosage: 75 MG, 1X/DAY
     Dates: start: 20101215, end: 20101228
  16. DEVARON [Concomitant]
     Dosage: UNK
     Dates: start: 20100909
  17. FITOMENADION [Concomitant]
     Dosage: UNK
     Dates: start: 20110210, end: 20110210
  18. PANTOPRAZOL [Concomitant]
     Dosage: 40 MG, 1X/DAY
     Dates: start: 20100701
  19. CHLORHEXIDINE [Concomitant]
     Dosage: UNK
     Dates: start: 20101029, end: 20101107

REACTIONS (9)
  - HYPERSENSITIVITY [None]
  - HALLUCINATION [None]
  - ERYTHEMA [None]
  - CHROMATOPSIA [None]
  - SKIN EXFOLIATION [None]
  - GLOMERULAR FILTRATION RATE DECREASED [None]
  - MENTAL DISORDER [None]
  - MUSCULAR WEAKNESS [None]
  - FATIGUE [None]
